FAERS Safety Report 10402049 (Version 1)
Quarter: 2014Q3

REPORT INFORMATION
  Report Type: Other
  Country: FR (occurrence: FR)
  Receive Date: 20140822
  Receipt Date: 20140822
  Transmission Date: 20150326
  Serious: Yes (Hospitalization)
  Sender: FDA-Public Use
  Company Number: FR-MYLAN-2014M1001157

PATIENT

DRUGS (2)
  1. OMEPRAZOLE MYLAN 20 MG, G?LULE GASTRO-R?SISTANTE [Suspect]
     Active Substance: OMEPRAZOLE
     Indication: PRODUCT USED FOR UNKNOWN INDICATION
     Dosage: 20 MG, QD
     Route: 048
     Dates: start: 20101202, end: 20101204
  2. METOCLOPRAMIDE MYLAN 10 MG, COMPRIM? S?CABLE [Suspect]
     Active Substance: METOCLOPRAMIDE
     Indication: NAUSEA
     Dosage: 10 MG, QD
     Dates: start: 20101202, end: 20101204

REACTIONS (2)
  - Laryngeal discomfort [Recovered/Resolved]
  - Urticaria [Recovered/Resolved]

NARRATIVE: CASE EVENT DATE: 20101204
